FAERS Safety Report 22633611 (Version 1)
Quarter: 2023Q2

REPORT INFORMATION
  Report Type: Spontaneous
  Country: MY (occurrence: MY)
  Receive Date: 20230623
  Receipt Date: 20230623
  Transmission Date: 20230722
  Serious: Yes (Other)
  Sender: FDA-Public Use
  Company Number: MY-ALCON LABORATORIES-ALC2023MY002944

PATIENT
  Age: 2 Year
  Sex: Male

DRUGS (1)
  1. CYCLOGYL [Suspect]
     Active Substance: CYCLOPENTOLATE HYDROCHLORIDE
     Indication: Ophthalmological examination
     Dosage: 1 GTT DROP(S) QD
     Route: 047

REACTIONS (1)
  - Angioedema [Recovering/Resolving]
